FAERS Safety Report 5015841-X (Version None)
Quarter: 2006Q2

REPORT INFORMATION
  Report Type: 
  Country: None (occurrence: None)
  Receive Date: 20060526
  Receipt Date: 20060512
  Transmission Date: 20061013
  Serious: Yes (Death, Hospitalization)
  Sender: FDA-Public Use
  Company Number: S06-SWI-01580-01

PATIENT
  Age: 84 Year
  Sex: Male

DRUGS (8)
  1. MEMANTINE HCL [Suspect]
     Indication: DEMENTIA ALZHEIMER'S TYPE
     Dosage: 20 MG QD PO
     Route: 048
     Dates: start: 20051201, end: 20051228
  2. ZOLOFT [Suspect]
     Indication: DEMENTIA ALZHEIMER'S TYPE
     Dosage: 50 MG QD PO
     Route: 048
     Dates: start: 20051201, end: 20051228
  3. LASIX [Concomitant]
  4. NEURONTIN [Concomitant]
  5. NEURODOL [Concomitant]
  6. VITARUBIN (CYANOCOBALAMIN) [Concomitant]
  7. KONAKION [Concomitant]
  8. LAXOBERON (SODIUM PICOSULFATE) [Concomitant]

REACTIONS (4)
  - ANTIPHOSPHOLIPID ANTIBODIES POSITIVE [None]
  - BLOOD ALBUMIN DECREASED [None]
  - HEPATOCELLULAR DAMAGE [None]
  - PROTHROMBIN TIME PROLONGED [None]
